FAERS Safety Report 5529436-2 (Version None)
Quarter: 2007Q4

REPORT INFORMATION
  Report Type: 
  Country: None (occurrence: None)
  Receive Date: 20071129
  Receipt Date: 20071115
  Transmission Date: 20080405
  Serious: Yes (Other)
  Sender: FDA-Public Use
  Company Number: BE-ABBOTT-07P-013-0374698-00

PATIENT
  Age: 15 Year
  Sex: Female

DRUGS (5)
  1. CLARITHROMYCIN [Suspect]
     Indication: HELICOBACTER GASTRITIS
     Route: 048
  2. AMOXIL [Suspect]
     Indication: HELICOBACTER GASTRITIS
     Dosage: NOT REPORTED
  3. OMEPRAZOLE [Suspect]
     Indication: HELICOBACTER GASTRITIS
     Route: 048
  4. TACROLIMUS [Interacting]
     Indication: IMMUNOSUPPRESSANT DRUG THERAPY
     Dosage: NOT REPORTED
  5. TACROLIMUS [Interacting]
     Dosage: TITRATED

REACTIONS (8)
  - CONVULSION [None]
  - DEHYDRATION [None]
  - DIARRHOEA [None]
  - DRUG INTERACTION [None]
  - DRUG LEVEL INCREASED [None]
  - OLIGURIA [None]
  - RENAL IMPAIRMENT [None]
  - VOMITING [None]
